FAERS Safety Report 19278333 (Version 1)
Quarter: 2021Q2

REPORT INFORMATION
  Report Type: Spontaneous
  Country: US (occurrence: US)
  Receive Date: 20210520
  Receipt Date: 20210520
  Transmission Date: 20210717
  Serious: Yes (Hospitalization)
  Sender: FDA-Public Use
  Company Number: None

PATIENT
  Age: 23 Year
  Sex: Male
  Weight: 92.99 kg

DRUGS (4)
  1. ASCORBIC ACID. [Concomitant]
     Active Substance: ASCORBIC ACID
  2. MULTIVITAMIN WITH FOLIC ACID [Concomitant]
  3. HUMIRA [Suspect]
     Active Substance: ADALIMUMAB
     Dosage: ?          OTHER ROUTE:INJECTION?
  4. FLUTICASONE PROPIONSALMETEROL [Concomitant]

REACTIONS (1)
  - Small intestinal obstruction [None]

NARRATIVE: CASE EVENT DATE: 20200508
